FAERS Safety Report 8377542-X (Version None)
Quarter: 2012Q2

REPORT INFORMATION
  Report Type: 
  Country: None (occurrence: None)
  Receive Date: 20120522
  Receipt Date: 20120507
  Transmission Date: 20120825
  Serious: Yes (Other)
  Sender: FDA-Public Use
  Company Number: GB-WATSON-2012-08294

PATIENT
  Age: 69 Year
  Sex: Male

DRUGS (1)
  1. MINOCYCLINE HCL [Suspect]
     Indication: CONJUNCTIVITIS
     Dosage: UNK
     Route: 048

REACTIONS (2)
  - PIGMENTATION DISORDER [None]
  - CONJUNCTIVAL DEPOSIT [None]
